FAERS Safety Report 5525573-7 (Version None)
Quarter: 2007Q4

REPORT INFORMATION
  Report Type: 
  Country: None (occurrence: None)
  Receive Date: 20071126
  Receipt Date: 20071121
  Transmission Date: 20080405
  Serious: Yes (Life-Threatening, Hospitalization)
  Sender: FDA-Public Use
  Company Number: B0496325A

PATIENT
  Age: 54 Year
  Sex: Male

DRUGS (9)
  1. RANIPLEX [Suspect]
     Indication: PREMEDICATION
     Dosage: 1UNIT PER DAY
     Route: 042
  2. CETUXIMAB [Suspect]
     Indication: CHEMOTHERAPY
     Route: 042
  3. OSMOTAN [Suspect]
     Route: 042
  4. PRIMPERAN INJ [Suspect]
     Dosage: 1UNIT PER DAY
     Route: 042
  5. POLARAMINE [Suspect]
     Dosage: 1UNIT PER DAY
     Route: 042
  6. SOLU-MEDROL [Suspect]
     Dosage: 80MG PER DAY
     Route: 042
  7. FOLINIC ACID [Concomitant]
     Indication: CHEMOTHERAPY
     Route: 065
  8. OXALIPLATIN [Concomitant]
     Indication: CHEMOTHERAPY
  9. FLUOROURACIL [Concomitant]
     Indication: CHEMOTHERAPY

REACTIONS (4)
  - ANAPHYLACTIC SHOCK [None]
  - CONVULSION [None]
  - HYPOTENSION [None]
  - LOSS OF CONSCIOUSNESS [None]
